FAERS Safety Report 18556488 (Version 1)
Quarter: 2020Q4

REPORT INFORMATION
  Report Type: Spontaneous
  Country: US (occurrence: US)
  Receive Date: 20201128
  Receipt Date: 20201128
  Transmission Date: 20210114
  Serious: Yes (Hospitalization)
  Sender: FDA-Public Use
  Company Number: US-009507513-2011USA013887

PATIENT
  Age: 46 Year
  Sex: Male

DRUGS (17)
  1. TKI258 [Suspect]
     Active Substance: DOVITINIB LACTATE
     Indication: NEOPLASM
     Dosage: 500 MG, QW5 (DAYS 1-5 AND DAYS 6-7 OFF EACH WEEK)
     Route: 048
     Dates: start: 20150114, end: 20150222
  2. SENNA [Concomitant]
     Active Substance: SENNA LEAF\SENNOSIDES\SENNOSIDES A AND B
     Indication: CONSTIPATION
     Dosage: 8.6 MG, QD (PRN)
     Route: 048
     Dates: start: 20140905
  3. MARINOL [Concomitant]
     Active Substance: DRONABINOL
     Indication: DECREASED APPETITE
     Dosage: 2.5 MG, BID
     Route: 048
     Dates: start: 20140915
  4. MIRALAX [Concomitant]
     Active Substance: POLYETHYLENE GLYCOL 3350
     Indication: CONSTIPATION
     Dosage: 17 G, QD (PRN)
     Route: 048
     Dates: start: 20140905
  5. DOCUSATE SODIUM. [Concomitant]
     Active Substance: DOCUSATE SODIUM
     Indication: CONSTIPATION
     Dosage: 100 MG, QD (100 MG CAP, 1-6 CAPS DAILY PRN)
     Route: 048
     Dates: start: 20150118
  6. ALEVE [Concomitant]
     Active Substance: NAPROXEN SODIUM
     Indication: HEADACHE
     Dosage: 220 MG (1-2 TABS), PRN
     Route: 048
     Dates: start: 20150114
  7. AMLODIPINE [Concomitant]
     Active Substance: AMLODIPINE BESYLATE
     Indication: HYPERTENSION
     Dosage: 2.5 MG, QD (2 TABS)
     Route: 048
     Dates: start: 20140910, end: 20150221
  8. OXYCODONE [Concomitant]
     Active Substance: OXYCODONE
     Indication: MYALGIA
     Dosage: UNK
  9. OXYCODONE [Concomitant]
     Active Substance: OXYCODONE
     Indication: ABDOMINAL PAIN
     Dosage: 5 MG, Q4H (IR 1-2 TAB PRN)
     Route: 048
     Dates: start: 201404
  10. PRINIVIL [Suspect]
     Active Substance: LISINOPRIL
     Indication: HYPERTENSION
     Dosage: 5 MG, QD
     Route: 048
     Dates: start: 20141201, end: 20150221
  11. LEVOTHYROXINE SODIUM. [Concomitant]
     Active Substance: LEVOTHYROXINE SODIUM
     Indication: HYPOTHYROIDISM
     Dosage: 25 UG, QD
     Route: 048
     Dates: start: 20141219, end: 20150121
  12. OMEPRAZOLE. [Concomitant]
     Active Substance: OMEPRAZOLE
     Indication: DYSPEPSIA
     Dosage: 40 MG, QD
     Route: 048
     Dates: start: 20141119
  13. TKI258 [Suspect]
     Active Substance: DOVITINIB LACTATE
     Dosage: UNK
     Route: 048
     Dates: start: 20150223
  14. SIMETHICONE (DIMETHICONE) [Concomitant]
     Active Substance: DIMETHICONE
     Indication: DYSPEPSIA
     Dosage: 80 MG, BID (DAILY)
     Route: 048
     Dates: start: 20141119
  15. EXCEDRIN (ACETAMINOPHEN (+) CAFFEINE) [Concomitant]
     Indication: MIGRAINE
     Dosage: 1 DF, BID (DAILY)
     Route: 048
     Dates: start: 20141001, end: 20150114
  16. ATIVAN [Concomitant]
     Active Substance: LORAZEPAM
     Indication: ANXIETY
     Dosage: 1 MG, Q8H (PRN)
     Route: 065
     Dates: start: 20141022
  17. RESTORIL [Concomitant]
     Active Substance: TEMAZEPAM
     Indication: INSOMNIA
     Dosage: 15 MG, PRN (QPM)
     Route: 048
     Dates: start: 201410

REACTIONS (1)
  - Angioedema [Recovered/Resolved]

NARRATIVE: CASE EVENT DATE: 20150222
